FAERS Safety Report 9311640 (Version 1)
Quarter: 2013Q2

REPORT INFORMATION
  Report Type: Spontaneous
  Country: US (occurrence: US)
  Receive Date: 20130528
  Receipt Date: 20130528
  Transmission Date: 20140414
  Serious: No
  Sender: FDA-Public Use
  Company Number: US-PFIZER INC-2013159587

PATIENT
  Age: 50 Year
  Sex: Female
  Weight: 70 kg

DRUGS (1)
  1. CYTOMEL [Suspect]
     Indication: THYROID DISORDER
     Dosage: 25 UG, 1X/DAY
     Dates: start: 1992, end: 2003

REACTIONS (1)
  - Palpitations [Unknown]
